FAERS Safety Report 11782784 (Version 7)
Quarter: 2017Q2

REPORT INFORMATION
  Report Type: Report from Study
  Country: CA (occurrence: CA)
  Receive Date: 20151127
  Receipt Date: 20170626
  Transmission Date: 20170829
  Serious: Yes (Death, Other)
  Sender: FDA-Public Use
  Company Number: CA-ROCHE-1646240

PATIENT
  Age: 81 Year
  Sex: Female

DRUGS (15)
  1. SENOKOT [Concomitant]
     Active Substance: SENNOSIDES
  2. DILTIAZEM. [Concomitant]
     Active Substance: DILTIAZEM
  3. SALBUTAMOL [Concomitant]
     Active Substance: ALBUTEROL
  4. OXYGEN. [Concomitant]
     Active Substance: OXYGEN
  5. EURO-FER [Concomitant]
  6. DOCUSATE SODIUM. [Concomitant]
     Active Substance: DOCUSATE SODIUM
  7. SYMBICORT [Concomitant]
     Active Substance: BUDESONIDE\FORMOTEROL FUMARATE DIHYDRATE
  8. PANTOPRAZOLE [Concomitant]
     Active Substance: PANTOPRAZOLE
  9. ESBRIET [Suspect]
     Active Substance: PIRFENIDONE
     Indication: IDIOPATHIC PULMONARY FIBROSIS
     Route: 048
     Dates: start: 20150929
  10. NEXIUM [Concomitant]
     Active Substance: ESOMEPRAZOLE MAGNESIUM
  11. CLOPIDOGREL [Concomitant]
     Active Substance: CLOPIDOGREL BISULFATE
  12. EZETROL [Concomitant]
     Active Substance: EZETIMIBE
  13. ASA [Concomitant]
     Active Substance: ASPIRIN
  14. ESBRIET [Suspect]
     Active Substance: PIRFENIDONE
     Dosage: 3 CAPSULES/TID
     Route: 048
     Dates: start: 201510
  15. ROSUVASTATIN. [Concomitant]
     Active Substance: ROSUVASTATIN

REACTIONS (9)
  - Dyspepsia [Not Recovered/Not Resolved]
  - Carbon monoxide diffusing capacity decreased [Unknown]
  - Oxygen saturation decreased [Unknown]
  - Bronchitis [Not Recovered/Not Resolved]
  - Dyspnoea [Not Recovered/Not Resolved]
  - Blood pressure increased [Unknown]
  - Hypogeusia [Not Recovered/Not Resolved]
  - Pulmonary function test decreased [Not Recovered/Not Resolved]
  - Death [Fatal]

NARRATIVE: CASE EVENT DATE: 2016
